FAERS Safety Report 23880725 (Version 2)
Quarter: 2024Q2

REPORT INFORMATION
  Report Type: Spontaneous
  Country: CN (occurrence: CN)
  Receive Date: 20240521
  Receipt Date: 20240524
  Transmission Date: 20240716
  Serious: Yes (Other)
  Sender: FDA-Public Use
  Company Number: CN-SA-SAC20240520000057

PATIENT
  Age: 70 Year
  Sex: Female

DRUGS (2)
  1. ELOXATIN [Suspect]
     Active Substance: OXALIPLATIN
     Indication: Chemotherapy
     Dosage: 170 MG, QD
     Route: 041
     Dates: start: 20240424, end: 20240424
  2. DEXTROSE [Concomitant]
     Active Substance: DEXTROSE\DEXTROSE MONOHYDRATE
     Indication: Chemotherapy
     Dosage: 500 ML
     Route: 041
     Dates: start: 20240424

REACTIONS (6)
  - Mastoiditis [Recovered/Resolved]
  - Otitis media [Recovered/Resolved]
  - Ear pain [Recovered/Resolved]
  - Tinnitus [Recovered/Resolved]
  - Hypoacusis [Recovered/Resolved]
  - Ear discomfort [Recovered/Resolved]

NARRATIVE: CASE EVENT DATE: 20240506
